FAERS Safety Report 6401608-4 (Version None)
Quarter: 2009Q4

REPORT INFORMATION
  Report Type: 
  Country: None (occurrence: None)
  Receive Date: 20091015
  Receipt Date: 20091004
  Transmission Date: 20100525
  Serious: Yes (Hospitalization)
  Sender: FDA-Public Use
  Company Number: NO-ELI_LILLY_AND_COMPANY-NO200910001117

PATIENT
  Sex: Male

DRUGS (8)
  1. GEMZAR [Suspect]
     Indication: PANCREATIC CARCINOMA
     Dosage: UNK, 13 TIMES
     Route: 048
     Dates: start: 20090101, end: 20090701
  2. OXYCONTIN [Concomitant]
     Dosage: UNK, UNKNOWN
     Route: 065
  3. PREDNISOLONE [Concomitant]
     Dosage: UNK, UNKNOWN
     Route: 065
  4. ALBYL-E [Concomitant]
     Dosage: UNK, UNKNOWN
     Route: 065
  5. CREON [Concomitant]
     Dosage: UNK, UNKNOWN
     Route: 065
  6. NORVASC [Concomitant]
     Dosage: UNK, UNKNOWN
     Route: 065
  7. SOMAC [Concomitant]
     Dosage: UNK, UNKNOWN
     Route: 065
  8. ZOFRAN [Concomitant]
     Dosage: UNK, UNKNOWN
     Route: 065

REACTIONS (3)
  - HAEMOLYTIC URAEMIC SYNDROME [None]
  - INCORRECT ROUTE OF DRUG ADMINISTRATION [None]
  - THROMBOTIC THROMBOCYTOPENIC PURPURA [None]
